FAERS Safety Report 25941522 (Version 3)
Quarter: 2025Q4

REPORT INFORMATION
  Report Type: Spontaneous
  Country: EU (occurrence: EU)
  Receive Date: 20251020
  Receipt Date: 20251211
  Transmission Date: 20260118
  Serious: Yes (Hospitalization, Other)
  Sender: NOVARTIS
  Company Number: EU-002147023-NVSC2025DE158691

PATIENT
  Sex: Male

DRUGS (5)
  1. PLUVICTO [Suspect]
     Active Substance: LUTETIUM LU-177 VIPIVOTIDE TETRAXETAN
     Indication: Product used for unknown indication
     Dosage: UNK
     Route: 065
  2. RAMIPRIL [Concomitant]
     Active Substance: RAMIPRIL
     Indication: Hypertension
     Dosage: UNK
     Route: 065
  3. BISOPROLOL [Concomitant]
     Active Substance: BISOPROLOL
     Indication: Hypertension
     Dosage: UNK
     Route: 065
  4. XTANDI [Concomitant]
     Active Substance: ENZALUTAMIDE
     Indication: Product used for unknown indication
     Dosage: UNK
     Route: 065
  5. TALZENNA [Concomitant]
     Active Substance: TALAZOPARIB TOSYLATE
     Indication: Product used for unknown indication
     Dosage: 0.5 MG
     Route: 065

REACTIONS (15)
  - Pleural effusion [Recovered/Resolved]
  - Cardiac failure [Unknown]
  - Prostatic specific antigen increased [Unknown]
  - Gait disturbance [Recovering/Resolving]
  - Constipation [Unknown]
  - Dry mouth [Unknown]
  - Fatigue [Unknown]
  - Dysphagia [Unknown]
  - Decreased appetite [Unknown]
  - Weight decreased [Unknown]
  - Heart rate abnormal [Unknown]
  - Blood pressure increased [Unknown]
  - Tooth disorder [Unknown]
  - Jaw disorder [Unknown]
  - Off label use [Unknown]

NARRATIVE: CASE EVENT DATE: 20250101
